FAERS Safety Report 24557501 (Version 2)
Quarter: 2024Q4

REPORT INFORMATION
  Report Type: Spontaneous
  Country: US (occurrence: US)
  Receive Date: 20241028
  Receipt Date: 20241108
  Transmission Date: 20250115
  Serious: No
  Sender: NOBELPHARMA AMERICA, LLC
  Company Number: US-Nobelpharma America, LLC-NPA-2024-01843

PATIENT
  Sex: Male

DRUGS (1)
  1. HYFTOR [Suspect]
     Active Substance: SIROLIMUS
     Indication: Tuberous sclerosis complex
     Dosage: MAX DAILY 600MG/CM
     Route: 003
     Dates: start: 20230829

REACTIONS (3)
  - Cough [Unknown]
  - Respiration abnormal [Unknown]
  - Off label use [Unknown]
